FAERS Safety Report 21322516 (Version 2)
Quarter: 2022Q4

REPORT INFORMATION
  Report Type: Report from Study
  Country: JP (occurrence: JP)
  Receive Date: 20220912
  Receipt Date: 20221019
  Transmission Date: 20230112
  Serious: Yes (Other)
  Sender: FDA-Public Use
  Company Number: JP-GSKPMS-217893-0022-020

PATIENT

DRUGS (3)
  1. SOTROVIMAB [Suspect]
     Active Substance: SOTROVIMAB
     Indication: COVID-19
     Dosage: 500 MG, 200 ML/H (100ML/30MIN)
     Route: 041
     Dates: start: 20220805
  2. SULBACTAM + AMPICILLIN I.M [Concomitant]
     Dosage: UNK
  3. CARBOCYSTEINE [Concomitant]
     Active Substance: CARBOCYSTEINE
     Indication: COVID-19
     Dosage: UNK

REACTIONS (5)
  - Deep vein thrombosis [Recovering/Resolving]
  - Pneumonia legionella [Recovering/Resolving]
  - Iron deficiency anaemia [Recovering/Resolving]
  - Condition aggravated [Recovering/Resolving]
  - Procedural pain [Recovered/Resolved]

NARRATIVE: CASE EVENT DATE: 20220805
